FAERS Safety Report 6781160-4 (Version None)
Quarter: 2010Q2

REPORT INFORMATION
  Report Type: 
  Country: None (occurrence: None)
  Receive Date: 20100621
  Receipt Date: 20100615
  Transmission Date: 20101027
  Serious: No
  Sender: FDA-Public Use
  Company Number: US-BAYER-201016851BCC

PATIENT
  Age: 82 Year
  Sex: Female
  Weight: 95 kg

DRUGS (5)
  1. ALEVE (CAPLET) [Suspect]
     Indication: BACK PAIN
     Dosage: TOTAL DAILY DOSE: 220 MG  UNIT DOSE: 220 MG
     Route: 048
     Dates: start: 20100614
  2. BYETTA [Concomitant]
     Route: 065
  3. BYETTA [Concomitant]
     Route: 065
     Dates: start: 20100615
  4. NIASPAN [Concomitant]
     Route: 065
  5. TRICOLO [Concomitant]
     Route: 065

REACTIONS (1)
  - BLOOD GLUCOSE INCREASED [None]
